FAERS Safety Report 5419800-4 (Version None)
Quarter: 2007Q3

REPORT INFORMATION
  Report Type: 
  Country: None (occurrence: None)
  Receive Date: 20070820
  Receipt Date: 20070815
  Transmission Date: 20080115
  Serious: Yes (Death, Hospitalization)
  Sender: FDA-Public Use
  Company Number: US-ASTRAZENECA-2007UW17892

PATIENT
  Age: 27224 Day
  Sex: Male

DRUGS (11)
  1. IRESSA [Suspect]
     Indication: LUNG ADENOCARCINOMA
     Route: 048
     Dates: start: 20070501, end: 20070712
  2. DOCETAXEL [Suspect]
     Indication: LUNG ADENOCARCINOMA
     Route: 042
     Dates: start: 20070501, end: 20070702
  3. CELEXA [Concomitant]
  4. FOLIC ACID [Concomitant]
  5. SPIRIVA [Concomitant]
     Dosage: AS NEEDED
  6. LANTUS [Concomitant]
     Route: 058
  7. CARAFATE [Concomitant]
     Dosage: WITH MEALS
  8. OXYCODONE HCL [Concomitant]
     Indication: PAIN
  9. HUMALOG [Concomitant]
  10. NEXIUM [Concomitant]
     Route: 048
  11. ASPIRIN [Concomitant]

REACTIONS (7)
  - ANOREXIA [None]
  - ATRIAL FIBRILLATION [None]
  - CONFUSIONAL STATE [None]
  - DEATH [None]
  - DYSPNOEA [None]
  - HYPOTENSION [None]
  - PNEUMONIA [None]
